FAERS Safety Report 9284995 (Version 3)
Quarter: 2013Q2

REPORT INFORMATION
  Report Type: Report from Study
  Country: IT (occurrence: IT)
  Receive Date: 20130513
  Receipt Date: 20130620
  Transmission Date: 20140414
  Serious: Yes (Hospitalization, Other)
  Sender: FDA-Public Use
  Company Number: PHHY2013IT028325

PATIENT
  Age: 71 Year
  Sex: Male

DRUGS (18)
  1. CERTICAN [Suspect]
     Indication: PROPHYLAXIS AGAINST TRANSPLANT REJECTION
     Dosage: 1 MG, UNK
     Route: 048
     Dates: start: 20070701
  2. DELTACORTENE [Concomitant]
     Dosage: 1 DF, UNK
  3. LANSOX [Concomitant]
     Dosage: 1 DF, UNK
  4. LANOXIN [Concomitant]
     Dosage: 1 DF, UNK
  5. ACTRAPID HUMAN [Concomitant]
     Dosage: 32 U; 6 U (BEFORE BREAKFAST) AT 8AM, 16 U, (BEFORE LUNCH) AT 00.00 AND 10 U, (BEFORE DINNER) AT 8PM
  6. LASIX [Concomitant]
     Dosage: 1 DF, BID (AT 8 AM AND 4 PM)
  7. ALDACTONE [Concomitant]
     Dosage: 1 DF, BID (AT 8AM AND AT 04 PM)
  8. CARDICOR [Concomitant]
     Dosage: 1 DF, UNK
  9. NITRODERM [Concomitant]
     Dosage: 2 DF, (ONE AT 8 AM AND 01 AT 08 PM)
  10. TEGRETOL [Concomitant]
     Dosage: 1.5 DF, (1/2 TABLET AT 8 AM AND 1 TABLET AT 8PM)
  11. ZYLORIC [Concomitant]
     Dosage: 0.5 DF, UNK
  12. CARDIOASPIRIN [Concomitant]
     Dosage: 1 DF, UNK
  13. PLAVIX [Concomitant]
     Dosage: 1 DF, UNK
  14. ALLOPURINOL [Concomitant]
     Dosage: 0.5 DF, UNK
  15. AVODART [Concomitant]
     Dosage: 1 DF, UNK
  16. OMNIC [Concomitant]
     Dosage: 1 DF, UNK
  17. LANTUS [Concomitant]
     Dosage: 16 U, AT 10 PM
  18. DIBASE [Concomitant]
     Dosage: 20 DRP/WEEK ON SUNDAY

REACTIONS (31)
  - Extremity necrosis [Recovered/Resolved with Sequelae]
  - Pain in extremity [Recovered/Resolved with Sequelae]
  - Arterial stenosis [Recovered/Resolved with Sequelae]
  - Vesicoureteric reflux [Recovered/Resolved with Sequelae]
  - Pyelocaliectasis [Recovered/Resolved with Sequelae]
  - C-reactive protein increased [Recovered/Resolved with Sequelae]
  - Blood uric acid increased [Recovered/Resolved with Sequelae]
  - Blood urea increased [Recovered/Resolved with Sequelae]
  - Blood creatinine increased [Recovered/Resolved with Sequelae]
  - Proteinuria [Recovered/Resolved with Sequelae]
  - Arterial disorder [Recovered/Resolved with Sequelae]
  - Prostatomegaly [Recovered/Resolved with Sequelae]
  - Aortic calcification [Recovered/Resolved with Sequelae]
  - Gamma-glutamyltransferase abnormal [Recovered/Resolved with Sequelae]
  - Blood alkaline phosphatase increased [Recovered/Resolved with Sequelae]
  - Blood 25-hydroxycholecalciferol decreased [Recovered/Resolved with Sequelae]
  - Osteonecrosis [Recovered/Resolved with Sequelae]
  - Immunosuppressant drug level decreased [Recovered/Resolved with Sequelae]
  - Hyperpyrexia [Recovered/Resolved with Sequelae]
  - Non-Hodgkin^s lymphoma [Recovered/Resolved with Sequelae]
  - Aortic aneurysm [Recovered/Resolved with Sequelae]
  - Vesical fistula [Recovered/Resolved with Sequelae]
  - Candida infection [Recovered/Resolved with Sequelae]
  - Urosepsis [Recovered/Resolved with Sequelae]
  - Peripheral arterial occlusive disease [Recovered/Resolved with Sequelae]
  - Pyrexia [Recovered/Resolved with Sequelae]
  - Peripheral artery aneurysm [Recovered/Resolved with Sequelae]
  - Abscess [Recovered/Resolved with Sequelae]
  - Staphylococcal bacteraemia [Recovered/Resolved with Sequelae]
  - Haematoma [Recovered/Resolved with Sequelae]
  - Epilepsy [Recovered/Resolved with Sequelae]
